FAERS Safety Report 6182775-7 (Version None)
Quarter: 2009Q2

REPORT INFORMATION
  Report Type: 
  Country: None (occurrence: None)
  Receive Date: 20090507
  Receipt Date: 20090427
  Transmission Date: 20091009
  Serious: Yes (Other)
  Sender: FDA-Public Use
  Company Number: IN-PFIZER INC-2009188790

PATIENT

DRUGS (1)
  1. DOLONEX [Suspect]
     Indication: MUSCULOSKELETAL PAIN
     Dosage: 2 ML, SINGLE
     Route: 030

REACTIONS (3)
  - DYSPNOEA [None]
  - RASH [None]
  - SWELLING FACE [None]
